FAERS Safety Report 4546518-2 (Version None)
Quarter: 2005Q1

REPORT INFORMATION
  Report Type: 
  Country: None (occurrence: None)
  Receive Date: 20050106
  Receipt Date: 20040810
  Transmission Date: 20050727
  Serious: Yes (Death)
  Sender: FDA-Public Use
  Company Number: JP-GLAXOSMITHKLINE-B0342363A

PATIENT
  Age: 30 Year
  Sex: Male

DRUGS (5)
  1. ADEFOVIR DIPIVOXIL KIT [Suspect]
     Dosage: 10MG PER DAY
     Route: 048
     Dates: start: 20031027
  2. ZEFIX [Suspect]
     Route: 048
     Dates: start: 20010725, end: 20040409
  3. METHYLPREDNISOLONE SODIUM SUCCINATE [Concomitant]
     Indication: HEPATITIS
     Dates: start: 20020722
  4. INTERFERON [Concomitant]
     Indication: HEPATITIS
     Dates: start: 20020728, end: 20031115
  5. GLYCYRRHIZIN [Concomitant]
     Indication: HEPATITIS
     Dates: start: 20020722

REACTIONS (13)
  - ASCITES [None]
  - BLOOD CREATININE INCREASED [None]
  - CREATININE RENAL CLEARANCE DECREASED [None]
  - DISEASE PROGRESSION [None]
  - HEPATIC ATROPHY [None]
  - HEPATIC CIRRHOSIS [None]
  - HEPATIC ENCEPHALOPATHY [None]
  - HEPATIC FAILURE [None]
  - HEPATITIS [None]
  - OESOPHAGEAL VARICES HAEMORRHAGE [None]
  - PATHOGEN RESISTANCE [None]
  - RENAL DISORDER [None]
  - SPLENOMEGALY [None]
